FAERS Safety Report 9962158 (Version 1)
Quarter: 2014Q1

REPORT INFORMATION
  Report Type: Report from Study
  Country: US (occurrence: US)
  Receive Date: 20140305
  Receipt Date: 20140305
  Transmission Date: 20141002
  Serious: No
  Sender: FDA-Public Use
  Company Number: US-ABBVIE-13P-163-1116135-00

PATIENT
  Age: 40 Year
  Sex: Female

DRUGS (4)
  1. HUMIRA [Suspect]
     Indication: CROHN^S DISEASE
     Dates: start: 20130320
  2. METOPROLOL [Concomitant]
     Indication: BLOOD PRESSURE
     Dosage: 25MG DAILY
  3. FUROSEMIDE [Concomitant]
     Indication: PRODUCT USED FOR UNKNOWN INDICATION
     Dosage: 20MG DAILY
  4. CELEXA [Concomitant]
     Indication: ANXIETY
     Dosage: 10MG DAILY

REACTIONS (1)
  - Crohn^s disease [Not Recovered/Not Resolved]
